FAERS Safety Report 7722994-9 (Version None)
Quarter: 2011Q3

REPORT INFORMATION
  Report Type: 
  Country: None (occurrence: None)
  Receive Date: 20110826
  Receipt Date: 20110812
  Transmission Date: 20111222
  Serious: Yes (Other)
  Sender: FDA-Public Use
  Company Number: USA/USA/11/0020695

PATIENT
  Age: 47 Year
  Sex: Female
  Weight: 108.9994 kg

DRUGS (4)
  1. LISINOPRIL AND HYDROCHLOROTHIAZIDE [Concomitant]
  2. BACLOFEN [Suspect]
     Indication: PRODUCT USED FOR UNKNOWN INDICATION
     Dates: start: 19990901
  3. DOXYCYCLINE HYCLATE [Suspect]
     Indication: RASH
  4. AMOXICILLIN [Suspect]
     Indication: INFECTION
     Dosage: 500 MG, 3 IN 1 D,

REACTIONS (10)
  - BRONCHOPNEUMONIA [None]
  - RASH [None]
  - BURNING SENSATION [None]
  - GASTRIC INFECTION [None]
  - ORAL INFECTION [None]
  - ERYTHEMA [None]
  - FLUSHING [None]
  - VOMITING [None]
  - PRURITUS [None]
  - BRONCHITIS [None]
